FAERS Safety Report 14607609 (Version 2)
Quarter: 2018Q1

REPORT INFORMATION
  Report Type: Spontaneous
  Country: JP (occurrence: JP)
  Receive Date: 20180307
  Receipt Date: 20180321
  Transmission Date: 20180509
  Serious: Yes (Hospitalization, Other)
  Sender: FDA-Public Use
  Company Number: PHJP2018JP002420

PATIENT
  Age: 35 Year
  Sex: Male
  Weight: 68 kg

DRUGS (31)
  1. AZILSARTAN [Suspect]
     Active Substance: AZILSARTAN KAMEDOXOMIL
     Indication: PRODUCT USED FOR UNKNOWN INDICATION
     Dosage: 40 MG, QD
     Route: 048
     Dates: start: 20161114
  2. PREDONINE [Suspect]
     Active Substance: PREDNISOLONE
     Dosage: 10/5 MG
     Route: 048
     Dates: start: 20170106, end: 20170113
  3. MYCOPHENOLATE MOFETIL. [Suspect]
     Active Substance: MYCOPHENOLATE MOFETIL
     Indication: PRODUCT USED FOR UNKNOWN INDICATION
     Dosage: UNK
     Route: 065
  4. RABEPRAZOLE SODIUM. [Concomitant]
     Active Substance: RABEPRAZOLE SODIUM
     Indication: PROPHYLAXIS
     Dosage: 10 MG, QD
     Route: 048
  5. PREDONINE [Suspect]
     Active Substance: PREDNISOLONE
     Dosage: 15 MG, QD
     Route: 048
     Dates: end: 20160601
  6. PREDONINE [Suspect]
     Active Substance: PREDNISOLONE
     Dosage: 20 MG, TID
     Route: 048
     Dates: start: 20161101, end: 20161201
  7. PREDONINE [Suspect]
     Active Substance: PREDNISOLONE
     Dosage: 10/5 MG
     Route: 048
     Dates: start: 20161223, end: 20170105
  8. PREDONINE [Suspect]
     Active Substance: PREDNISOLONE
     Dosage: 7.5/10 MG
     Route: 048
     Dates: start: 20170114, end: 20170127
  9. PREDONINE [Suspect]
     Active Substance: PREDNISOLONE
     Dosage: 5/2 MG
     Route: 048
     Dates: start: 20180215
  10. BAKTAR [Suspect]
     Active Substance: SULFAMETHOXAZOLE\TRIMETHOPRIM
     Indication: PROPHYLAXIS
     Dosage: 1 DF, QD
     Route: 048
     Dates: end: 20161207
  11. SAMTIREL [Suspect]
     Active Substance: ATOVAQUONE
     Indication: ASCITES
     Dosage: 750 MG, BID
     Route: 048
     Dates: start: 20161209
  12. SAMSCA [Suspect]
     Active Substance: TOLVAPTAN
     Indication: ASCITES
     Dosage: 7.5 MG, QD
     Route: 048
     Dates: start: 20161226
  13. LASIX [Suspect]
     Active Substance: FUROSEMIDE
     Indication: ASCITES
     Dosage: 20 MG, UNK
     Route: 048
  14. SELARA [Suspect]
     Active Substance: EPLERENONE
     Indication: ASCITES
     Dosage: 50 MG, QD
     Route: 048
     Dates: start: 20170831
  15. PREDONINE [Suspect]
     Active Substance: PREDNISOLONE
     Indication: SYSTEMIC LUPUS ERYTHEMATOSUS
     Dosage: 40 MG, QD
     Route: 048
     Dates: start: 2004
  16. PREDONINE [Suspect]
     Active Substance: PREDNISOLONE
     Dosage: 5 MG, TID
     Route: 048
     Dates: start: 20170128, end: 20170301
  17. PREDONINE [Suspect]
     Active Substance: PREDNISOLONE
     Dosage: 5/2 MG
     Route: 048
     Dates: start: 20170511, end: 20170621
  18. SPIRONOLACTONE. [Suspect]
     Active Substance: SPIRONOLACTONE
     Indication: ASCITES
     Dosage: 75 MG, UNK
     Route: 048
     Dates: start: 20161207, end: 20170830
  19. CELLCEPT [Suspect]
     Active Substance: MYCOPHENOLATE MOFETIL\MYCOPHENOLATE MOFETIL HYDROCHLORIDE
     Indication: SYSTEMIC LUPUS ERYTHEMATOSUS
     Dosage: 500 MG, BID
     Route: 048
     Dates: start: 20161102, end: 20161118
  20. PREDONINE [Suspect]
     Active Substance: PREDNISOLONE
     Dosage: 10 MG, TID
     Route: 048
     Dates: start: 201606, end: 20161101
  21. PREDONINE [Suspect]
     Active Substance: PREDNISOLONE
     Dosage: 20/15 MG
     Route: 048
     Dates: start: 20161201, end: 20161209
  22. NEORAL [Suspect]
     Active Substance: CYCLOSPORINE
     Indication: LUPUS NEPHRITIS
  23. PREDONINE [Suspect]
     Active Substance: PREDNISOLONE
     Dosage: 5/3 MG
     Route: 048
     Dates: start: 20170413, end: 20170510
  24. PREDONINE [Suspect]
     Active Substance: PREDNISOLONE
     Dosage: 5 MG, BID
     Route: 048
     Dates: start: 20171115, end: 20180117
  25. PREDONINE [Suspect]
     Active Substance: PREDNISOLONE
     Dosage: 20/15 MG
     Route: 048
     Dates: start: 20161209, end: 20161216
  26. PREDONINE [Suspect]
     Active Substance: PREDNISOLONE
     Dosage: 10 MG, TID
     Route: 048
     Dates: start: 20161216, end: 20161222
  27. PREDONINE [Suspect]
     Active Substance: PREDNISOLONE
     Dosage: 5/4 MG
     Route: 048
     Dates: start: 20170302, end: 20170412
  28. PREDONINE [Suspect]
     Active Substance: PREDNISOLONE
     Dosage: 5/1 MG
     Route: 048
     Dates: start: 20170622, end: 20171114
  29. PREDONINE [Suspect]
     Active Substance: PREDNISOLONE
     Dosage: 5/3 MG
     Route: 048
     Dates: start: 20180118, end: 20180214
  30. NEORAL [Suspect]
     Active Substance: CYCLOSPORINE
     Indication: SYSTEMIC LUPUS ERYTHEMATOSUS
     Dosage: 300 MG, QD
     Route: 048
     Dates: start: 2006, end: 201611
  31. HERBESSER [Concomitant]
     Active Substance: DILTIAZEM HYDROCHLORIDE
     Indication: PRODUCT USED FOR UNKNOWN INDICATION
     Dosage: 30 MG, QD
     Route: 048
     Dates: end: 20161114

REACTIONS (19)
  - Chronic kidney disease [Recovered/Resolved with Sequelae]
  - Ascites [Not Recovered/Not Resolved]
  - Gastroenteritis [Recovered/Resolved]
  - Renal artery stenosis [Unknown]
  - Spinal compression fracture [Recovering/Resolving]
  - Nephropathy [Recovered/Resolved with Sequelae]
  - Pancytopenia [Recovering/Resolving]
  - Tubulointerstitial nephritis [Unknown]
  - Renal artery occlusion [Unknown]
  - Arterial disorder [Unknown]
  - Osteoporosis [Recovering/Resolving]
  - Renal tubular disorder [Unknown]
  - Pseudomembranous colitis [Recovered/Resolved]
  - Hepatic congestion [Recovering/Resolving]
  - Hepatic enzyme increased [Recovering/Resolving]
  - Diarrhoea [Unknown]
  - Renal tubular atrophy [Unknown]
  - Cardiac hypertrophy [Not Recovered/Not Resolved]
  - Product use in unapproved indication [Unknown]

NARRATIVE: CASE EVENT DATE: 201211
